FAERS Safety Report 9657988 (Version 1)
Quarter: 2013Q4

REPORT INFORMATION
  Report Type: Spontaneous
  Country: JP (occurrence: None)
  Receive Date: 20131029
  Receipt Date: 20131029
  Transmission Date: 20140711
  Serious: Yes (Other)
  Sender: FDA-Public Use
  Company Number: ABR_01218_2013

PATIENT
  Age: 47 Year
  Sex: Male
  Weight: 67 kg

DRUGS (1)
  1. GLIADEL [Suspect]
     Indication: MALIGNANT GLIOMA
     Dosage: 61.6MG 1X INTRACEREBRAL)
     Dates: start: 20130613, end: 20130613

REACTIONS (3)
  - Fluid retention [None]
  - Cerebrospinal fluid leakage [None]
  - Incision site complication [None]
